FAERS Safety Report 19157562 (Version 1)
Quarter: 2021Q2

REPORT INFORMATION
  Report Type: Spontaneous
  Country: US (occurrence: US)
  Receive Date: 20210420
  Receipt Date: 20210420
  Transmission Date: 20210717
  Serious: Yes (Hospitalization)
  Sender: FDA-Public Use
  Company Number: US-ROCHE-2814490

PATIENT
  Sex: Female

DRUGS (6)
  1. ESBRIET [Suspect]
     Active Substance: PIRFENIDONE
     Indication: IDIOPATHIC PULMONARY FIBROSIS
     Route: 048
     Dates: start: 20200131
  2. ASPIRIN. [Concomitant]
     Active Substance: ASPIRIN
  3. METOPROLOLTARTRAT [Concomitant]
  4. ATORVASTATIN [Concomitant]
     Active Substance: ATORVASTATIN
  5. LUMIGAN [Concomitant]
     Active Substance: BIMATOPROST
  6. ELIQUIS [Concomitant]
     Active Substance: APIXABAN

REACTIONS (2)
  - Visual impairment [Unknown]
  - Pneumonia [Unknown]
